FAERS Safety Report 12840574 (Version 2)
Quarter: 2016Q4

REPORT INFORMATION
  Report Type: Spontaneous
  Country: US (occurrence: US)
  Receive Date: 20161012
  Receipt Date: 20161102
  Transmission Date: 20170207
  Serious: Yes (Hospitalization)
  Sender: FDA-Public Use
  Company Number: US-BIOMARINAP-US-2016-111398

PATIENT
  Age: 27 Year
  Sex: Female
  Weight: 73.47 kg

DRUGS (3)
  1. VITAMIN B12 [Concomitant]
     Active Substance: CYANOCOBALAMIN
     Indication: PRODUCT USED FOR UNKNOWN INDICATION
     Dosage: 1000 ?G, QD
  2. MULTIVITAMIN                       /00831701/ [Concomitant]
     Active Substance: VITAMINS
     Indication: PRODUCT USED FOR UNKNOWN INDICATION
  3. KUVAN [Suspect]
     Active Substance: SAPROPTERIN DIHYDROCHLORIDE
     Indication: PHENYLKETONURIA
     Dosage: 1500 MG, QD
     Route: 065
     Dates: start: 2016

REACTIONS (5)
  - Appendicitis [Unknown]
  - Hepatic mass [Unknown]
  - Yellow skin [Recovering/Resolving]
  - Renal cyst [Unknown]
  - Porcelain gallbladder [Unknown]

NARRATIVE: CASE EVENT DATE: 20160907
